FAERS Safety Report 10600214 (Version 1)
Quarter: 2014Q4

REPORT INFORMATION
  Report Type: Spontaneous
  Country: US (occurrence: US)
  Receive Date: 20141122
  Receipt Date: 20141122
  Transmission Date: 20150529
  Serious: No
  Sender: FDA-Public Use
  Company Number: US-009507513-1410USA015960

PATIENT
  Age: 61 Year
  Sex: Female

DRUGS (1)
  1. ASMANEX [Suspect]
     Active Substance: MOMETASONE FUROATE
     Indication: ASTHMA
     Dosage: ALWAYS ONCE A DAY, OCCASIONALLY TWICE A DAY AS NEEDED
     Route: 055
     Dates: start: 201110

REACTIONS (3)
  - Drug dose omission [Unknown]
  - Product container issue [Unknown]
  - Product taste abnormal [Unknown]
